FAERS Safety Report 7329095-2 (Version None)
Quarter: 2011Q1

REPORT INFORMATION
  Report Type: 
  Country: None (occurrence: None)
  Receive Date: 20110303
  Receipt Date: 20110228
  Transmission Date: 20110831
  Serious: No
  Sender: FDA-Public Use
  Company Number: US-TEVA-269306USA

PATIENT
  Sex: Female
  Weight: 90.8 kg

DRUGS (4)
  1. CARVEDILOL [Concomitant]
     Indication: HYPERTENSION
  2. WELLBUTRIN [Concomitant]
     Indication: DEPRESSION
     Route: 048
  3. PLAN B ONE-STEP [Suspect]
     Indication: POST COITAL CONTRACEPTION
     Route: 048
     Dates: start: 20110222, end: 20110222
  4. BENICAR [Concomitant]
     Indication: HYPERTENSION
     Route: 048

REACTIONS (1)
  - MENSTRUATION IRREGULAR [None]
